FAERS Safety Report 20812714 (Version 1)
Quarter: 2022Q2

REPORT INFORMATION
  Report Type: Spontaneous
  Country: FR (occurrence: FR)
  Receive Date: 20220511
  Receipt Date: 20220511
  Transmission Date: 20220720
  Serious: Yes (Life-Threatening, Hospitalization)
  Sender: FDA-Public Use
  Company Number: None

PATIENT
  Age: 72 Year
  Sex: Male
  Weight: 93 kg

DRUGS (15)
  1. CHLORHEXIDINE GLUCONATE [Suspect]
     Active Substance: CHLORHEXIDINE GLUCONATE
     Indication: General anaesthesia
     Route: 003
     Dates: start: 20190404, end: 20190404
  2. AMLODIPINE BESYLATE [Concomitant]
     Active Substance: AMLODIPINE BESYLATE
  3. XARELTO [Concomitant]
     Active Substance: RIVAROXABAN
  4. SUFENTANIL [Suspect]
     Active Substance: SUFENTANIL
     Indication: General anaesthesia
     Route: 042
     Dates: start: 20190404, end: 20190404
  5. SIMVASTATIN [Concomitant]
     Active Substance: SIMVASTATIN
  6. LIDOCAINE [Suspect]
     Active Substance: LIDOCAINE
     Indication: General anaesthesia
     Route: 042
     Dates: start: 20190404, end: 20190404
  7. METFORMIN HYDROCHLORIDE [Concomitant]
     Active Substance: METFORMIN HYDROCHLORIDE
  8. CEFAZOLIN SODIUM [Suspect]
     Active Substance: CEFAZOLIN SODIUM
     Indication: General anaesthesia
     Route: 042
     Dates: start: 20190404, end: 20190404
  9. OMNIPAQUE [Suspect]
     Active Substance: IOHEXOL
     Indication: Angiogram
     Route: 042
     Dates: start: 20190404, end: 20190404
  10. INDAPAMIDE\PERINDOPRIL [Concomitant]
     Active Substance: INDAPAMIDE\PERINDOPRIL
  11. ATENOLOL [Concomitant]
     Active Substance: ATENOLOL
  12. PROPOFOL [Suspect]
     Active Substance: PROPOFOL
     Indication: General anaesthesia
     Route: 042
     Dates: start: 20190404, end: 20190404
  13. KETAMINE [Suspect]
     Active Substance: KETAMINE
     Indication: General anaesthesia
     Route: 042
     Dates: start: 20190404, end: 20190404
  14. TRACRIUM [Suspect]
     Active Substance: ATRACURIUM BESYLATE
     Indication: General anaesthesia
     Route: 042
     Dates: start: 20190404, end: 20190404
  15. KARDEGIC [Concomitant]
     Active Substance: ASPIRIN DL-LYSINE

REACTIONS (2)
  - Cardiac arrest [Recovered/Resolved]
  - Anaphylactic reaction [Recovered/Resolved]

NARRATIVE: CASE EVENT DATE: 20190404
